FAERS Safety Report 17827160 (Version 1)
Quarter: 2020Q2

REPORT INFORMATION
  Report Type: Spontaneous
  Country: DE (occurrence: DE)
  Receive Date: 20200527
  Receipt Date: 20200527
  Transmission Date: 20200714
  Serious: Yes (Hospitalization, Other)
  Sender: FDA-Public Use
  Company Number: DE-009507513-2005DEU007884

PATIENT
  Age: 25 Year
  Sex: Female

DRUGS (8)
  1. GONAL-F [Suspect]
     Active Substance: FOLLITROPIN
     Indication: INFERTILITY FEMALE
     Dosage: 150 INTERNATIONAL UNIT
  2. DOSTINEX [Suspect]
     Active Substance: CABERGOLINE
     Indication: OFF LABEL USE
     Dosage: 0.5 DOSAGE FORM
  3. GONAL-F [Suspect]
     Active Substance: FOLLITROPIN
     Indication: INFERTILITY FEMALE
     Dosage: 100 INTERNATIONAL UNIT
  4. ESTRIFAM [Suspect]
     Active Substance: ESTRADIOL
     Indication: INFERTILITY FEMALE
     Dosage: DAILY DOSE: 6 DF DOSAGE FORM EVERY DAY
     Route: 067
  5. PROGESTAN [Suspect]
     Active Substance: PROGESTERONE
     Indication: INFERTILITY FEMALE
     Dosage: DAILY DOSE: 3 DF DOSAGE FORM EVERY DAY
  6. ESTRIFAM [Suspect]
     Active Substance: ESTRADIOL
     Indication: INFERTILITY FEMALE
     Dosage: DAILY DOSE: 4 DF DOSAGE FORM EVERY DAY
     Route: 048
  7. FRAGMIN P FORTE [Suspect]
     Active Substance: DALTEPARIN SODIUM
     Indication: INFERTILITY FEMALE
     Dosage: DAILY DOSE: 1 DF DOSAGE FORM EVERY DAY
  8. ORGALUTRAN [Suspect]
     Active Substance: GANIRELIX ACETATE
     Indication: INFERTILITY FEMALE
     Dosage: 0.25 MILLIGRAM

REACTIONS (5)
  - Acute kidney injury [Recovered/Resolved]
  - Hepatic enzyme increased [Recovered/Resolved]
  - Intra-abdominal haemorrhage [Recovered/Resolved]
  - Ovarian enlargement [Recovered/Resolved]
  - Ovarian hyperstimulation syndrome [Recovered/Resolved]

NARRATIVE: CASE EVENT DATE: 20170925
